FAERS Safety Report 7395648-9 (Version None)
Quarter: 2011Q2

REPORT INFORMATION
  Report Type: 
  Country: None (occurrence: None)
  Receive Date: 20110405
  Receipt Date: 20091015
  Transmission Date: 20111010
  Serious: Yes (Other)
  Sender: FDA-Public Use
  Company Number: PHHY2009DE67552

PATIENT
  Sex: Female

DRUGS (1)
  1. EXTAVIA [Suspect]
     Dosage: 1 DF, QOD
     Route: 058
     Dates: start: 20090910, end: 20100415

REACTIONS (9)
  - INFLUENZA LIKE ILLNESS [None]
  - SKIN REACTION [None]
  - STRESS [None]
  - EATING DISORDER [None]
  - ARRHYTHMIA [None]
  - BURNOUT SYNDROME [None]
  - NAUSEA [None]
  - DRY MOUTH [None]
  - HEART RATE INCREASED [None]
